FAERS Safety Report 21839160 (Version 2)
Quarter: 2023Q1

REPORT INFORMATION
  Report Type: Report from Study
  Country: US (occurrence: US)
  Receive Date: 20230109
  Receipt Date: 20230125
  Transmission Date: 20230418
  Serious: Yes (Hospitalization)
  Sender: FDA-Public Use
  Company Number: US-GILEAD-2023-0611886

PATIENT
  Age: 12 Year
  Sex: Female
  Weight: 31.3 kg

DRUGS (3)
  1. AMBRISENTAN [Suspect]
     Active Substance: AMBRISENTAN
     Indication: Pulmonary arterial hypertension
     Dosage: 10 MG, QD
     Route: 065
  2. AMBRISENTAN [Suspect]
     Active Substance: AMBRISENTAN
     Dosage: 5 MG
     Route: 048
     Dates: start: 202209
  3. TADALAFIL [Concomitant]
     Active Substance: TADALAFIL
     Indication: Pulmonary arterial hypertension
     Dosage: 20 MG
     Route: 048
     Dates: start: 202209

REACTIONS (5)
  - Headache [Recovered/Resolved]
  - Flushing [Recovered/Resolved]
  - COVID-19 [Recovered/Resolved]
  - Eye infection [Unknown]
  - Swelling face [Unknown]

NARRATIVE: CASE EVENT DATE: 20221206
